FAERS Safety Report 8771479 (Version 1)
Quarter: 2012Q4

REPORT INFORMATION
  Report Type: 
  Country: FR (occurrence: FR)
  Receive Date: 20120906
  Receipt Date: 20120906
  Transmission Date: 20130627
  Serious: Yes (Hospitalization)
  Sender: FDA-Public Use
  Company Number: FR-GLAXOSMITHKLINE-B0825633A

PATIENT
  Age: 67 Year
  Sex: Female

DRUGS (6)
  1. ELTROMBOPAG OLAMINE [Suspect]
     Indication: PRODUCT USED FOR UNKNOWN INDICATION
     Route: 048
     Dates: start: 20120315, end: 20120529
  2. VICTRELIS [Suspect]
     Indication: HEPATITIS C
     Dosage: 2400MG Per day
     Route: 048
     Dates: start: 20111010, end: 20120521
  3. PEGASYS [Suspect]
     Indication: PRODUCT USED FOR UNKNOWN INDICATION
     Dosage: 135MCG Weekly
     Route: 058
     Dates: start: 20110916, end: 20120529
  4. COPEGUS [Suspect]
     Indication: PRODUCT USED FOR UNKNOWN INDICATION
     Dosage: 600MG Per day
     Route: 048
     Dates: start: 20110916, end: 20120529
  5. NEORECORMON [Suspect]
     Indication: PRODUCT USED FOR UNKNOWN INDICATION
     Dosage: 60000IU Weekly
     Route: 058
     Dates: start: 20110916, end: 20120529
  6. NEUPOGEN [Suspect]
     Indication: PRODUCT USED FOR UNKNOWN INDICATION
     Dosage: 60MU Weekly
     Route: 058
     Dates: start: 20110916, end: 20120529

REACTIONS (4)
  - Oedema peripheral [Recovered/Resolved]
  - Pulmonary hypertensive crisis [Recovered/Resolved]
  - Gastrointestinal disorder [Unknown]
  - Off label use [Unknown]
